FAERS Safety Report 7454056-2 (Version None)
Quarter: 2011Q2

REPORT INFORMATION
  Report Type: 
  Country: None (occurrence: None)
  Receive Date: 20110502
  Receipt Date: 20110422
  Transmission Date: 20111010
  Serious: Yes (Hospitalization, Other)
  Sender: FDA-Public Use
  Company Number: US-MERCK-0711USA02145

PATIENT
  Age: 64 Year
  Sex: Female

DRUGS (3)
  1. SIMVASTATIN [Concomitant]
     Indication: BLOOD CHOLESTEROL INCREASED
     Route: 065
     Dates: start: 20020101
  2. COZAAR [Concomitant]
     Indication: HYPERTENSION
     Route: 048
     Dates: start: 19980101
  3. FOSAMAX [Suspect]
     Indication: OSTEOPOROSIS
     Route: 048
     Dates: start: 20030101, end: 20050701

REACTIONS (15)
  - TOOTH DISORDER [None]
  - DIVERTICULUM [None]
  - COLITIS COLLAGENOUS [None]
  - ANXIETY [None]
  - HAEMORRHOIDS [None]
  - CATARACT [None]
  - JAW FRACTURE [None]
  - HYPOVOLAEMIA [None]
  - IMPAIRED HEALING [None]
  - OSTEOMYELITIS [None]
  - SINUS DISORDER [None]
  - ABSCESS JAW [None]
  - ORAL INFECTION [None]
  - OSTEONECROSIS OF JAW [None]
  - TOOTH ABSCESS [None]
